FAERS Safety Report 4779921-6 (Version None)
Quarter: 2005Q3

REPORT INFORMATION
  Report Type: 
  Country: None (occurrence: None)
  Receive Date: 20050914
  Receipt Date: 20050513
  Transmission Date: 20060218
  Serious: Yes (Hospitalization)
  Sender: FDA-Public Use
  Company Number: 163-20785-05050237

PATIENT
  Age: 32 Year
  Sex: Female

DRUGS (13)
  1. THALOMID [Suspect]
     Indication: MULTIPLE MYELOMA
     Dosage: 50 MG, DAILY, ORAL
     Route: 048
     Dates: start: 20050429, end: 20050429
  2. MSIR (MORPHINE SULFATE) (UNKNOWN) [Suspect]
     Indication: DRUG USE FOR UNKNOWN INDICATION
     Dosage: 15 MG
  3. MS CONTIN [Suspect]
     Indication: DRUG USE FOR UNKNOWN INDICATION
  4. VICODIN [Suspect]
     Indication: DRUG USE FOR UNKNOWN INDICATION
     Dosage: 5/500MG, Q4H
  5. METHOCARBAMOL [Suspect]
     Indication: DRUG USE FOR UNKNOWN INDICATION
  6. NEURONTIN [Suspect]
     Indication: DRUG USE FOR UNKNOWN INDICATION
     Dosage: 300 MG, TID
  7. ALLOPURINOL [Concomitant]
  8. DEXAMETHASONE [Concomitant]
  9. FUROSEMIDE [Concomitant]
  10. COLACE (DOCUSATE SODIUM) [Concomitant]
  11. COUMADIN [Concomitant]
  12. PREVACID [Concomitant]
  13. LISINOPRIL [Concomitant]

REACTIONS (1)
  - SEDATION [None]
